FAERS Safety Report 15643188 (Version 3)
Quarter: 2018Q4

REPORT INFORMATION
  Report Type: Report from Study
  Country: DE (occurrence: DE)
  Receive Date: 20181121
  Receipt Date: 20181130
  Transmission Date: 20190205
  Serious: Yes (Death, Other)
  Sender: FDA-Public Use
  Company Number: PHHY2018DE022770

PATIENT
  Sex: Female
  Weight: 74.5 kg

DRUGS (6)
  1. KISQALI [Suspect]
     Active Substance: RIBOCICLIB
     Indication: BREAST CANCER METASTATIC
     Dosage: 600 MG, QD (2/17)
     Route: 048
     Dates: start: 20180503, end: 20180523
  2. AFINITOR [Suspect]
     Active Substance: EVEROLIMUS
     Indication: BREAST CANCER METASTATIC
     Dosage: 5 MG, QD
     Route: 048
     Dates: start: 20180821
  3. KISQALI [Suspect]
     Active Substance: RIBOCICLIB
     Dosage: 600 MG, (2/17)
     Route: 048
     Dates: start: 20180726, end: 20180808
  4. KISQALI [Suspect]
     Active Substance: RIBOCICLIB
     Dosage: 600 MG, (2/17)
     Route: 048
     Dates: start: 20180628, end: 20180718
  5. LETROZOLE. [Suspect]
     Active Substance: LETROZOLE
     Indication: BREAST CANCER
     Dosage: 2.5 MG, QD
     Route: 048
     Dates: start: 20180503, end: 20180808
  6. KISQALI [Suspect]
     Active Substance: RIBOCICLIB
     Dosage: 600 MG, (2/17)
     Route: 048
     Dates: start: 20180531, end: 20180620

REACTIONS (11)
  - Peripheral swelling [Unknown]
  - Malignant neoplasm progression [Fatal]
  - Diarrhoea [Not Recovered/Not Resolved]
  - Breast cancer metastatic [Fatal]
  - Urinary tract infection [Recovered/Resolved]
  - Stasis dermatitis [Unknown]
  - Erythema [Unknown]
  - Tinea pedis [Recovered/Resolved]
  - Erysipelas [Not Recovered/Not Resolved]
  - Fatigue [Not Recovered/Not Resolved]
  - Dermatitis [Unknown]

NARRATIVE: CASE EVENT DATE: 20180530
